FAERS Safety Report 8303441-5 (Version None)
Quarter: 2012Q2

REPORT INFORMATION
  Report Type: 
  Country: None (occurrence: None)
  Receive Date: 20120423
  Receipt Date: 20120418
  Transmission Date: 20120825
  Serious: No
  Sender: FDA-Public Use
  Company Number: US-PFIZER INC-2012096797

PATIENT
  Sex: Female
  Weight: 65.76 kg

DRUGS (2)
  1. CELEBREX [Suspect]
     Indication: PAIN
     Dosage: 100 MG, 2X/DAY
     Route: 048
     Dates: start: 20120409, end: 20120418
  2. CELEBREX [Suspect]
     Indication: INFLAMMATION

REACTIONS (2)
  - JOINT STIFFNESS [None]
  - ARTHRALGIA [None]
